FAERS Safety Report 20202652 (Version 2)
Quarter: 2022Q3

REPORT INFORMATION
  Report Type: Spontaneous
  Country: US (occurrence: US)
  Receive Date: 20211218
  Receipt Date: 20220923
  Transmission Date: 20221026
  Serious: No
  Sender: FDA-Public Use
  Company Number: US-SANOFI-00893742

PATIENT
  Age: 64 Year
  Sex: Female

DRUGS (2)
  1. CAPRELSA [Suspect]
     Active Substance: VANDETANIB
     Indication: Thyroid cancer
     Dosage: 300 MG, QD
     Route: 048
     Dates: start: 202110
  2. CAPRELSA [Suspect]
     Active Substance: VANDETANIB
     Dosage: 200 MG

REACTIONS (1)
  - Hypophagia [Not Recovered/Not Resolved]
